FAERS Safety Report 6966069-5 (Version None)
Quarter: 2010Q3

REPORT INFORMATION
  Report Type: 
  Country: None (occurrence: None)
  Receive Date: 20100903
  Receipt Date: 20100805
  Transmission Date: 20110219
  Serious: No
  Sender: FDA-Public Use
  Company Number: A0874215A

PATIENT
  Age: 6 Year
  Sex: Female

DRUGS (2)
  1. LAMICTAL [Suspect]
     Dosage: 100MG TWICE PER DAY
     Route: 048
     Dates: start: 20100523
  2. NO CONCURRENT MEDICATION [Concomitant]

REACTIONS (2)
  - DRY SKIN [None]
  - SKIN ULCER [None]
